FAERS Safety Report 9844977 (Version 1)
Quarter: 2014Q1

REPORT INFORMATION
  Report Type: Spontaneous
  Country: US (occurrence: None)
  Receive Date: 20140122
  Receipt Date: 20140122
  Transmission Date: 20141002
  Serious: Yes (Death)
  Sender: FDA-Public Use
  Company Number: B0959191A

PATIENT
  Age: 52 Year
  Sex: Female

DRUGS (3)
  1. BUPROPION HYDROCHLORIDE [Suspect]
     Dosage: UNK
  2. QUETIAPINE (FORMULATION UNKNOWN) (GENERIC) (QUETIAPINE FUMARATE) [Suspect]
     Dosage: UNK
  3. PAROXETINE HYDROCHLORIDE (FORMULATION UNKNOWN) (GENERIC) (PAROXETINE HYDROCHLORIDE) [Suspect]
     Dosage: UNK

REACTIONS (1)
  - Completed suicide [None]
